FAERS Safety Report 4340631-0 (Version None)
Quarter: 2004Q2

REPORT INFORMATION
  Report Type: 
  Country: None (occurrence: None)
  Receive Date: 20040413
  Receipt Date: 20040330
  Transmission Date: 20050107
  Serious: Yes (Hospitalization, Other)
  Sender: FDA-Public Use
  Company Number: US-JNJFOC-20031100788

PATIENT
  Age: 77 Year
  Sex: Male
  Weight: 80.2867 kg

DRUGS (26)
  1. REMICADE [Suspect]
     Indication: RHEUMATOID ARTHRITIS
     Dosage: RECIEVED APPROXIMATELY THREE INFUSIONS
     Route: 042
     Dates: start: 20021031
  2. REMICADE [Suspect]
     Indication: RHEUMATOID ARTHRITIS
     Dosage: RECIEVED APPROXIMATELY THREE INFUSIONS
     Route: 042
     Dates: start: 20021112
  3. MORPHINE [Suspect]
     Indication: PAIN
  4. LIPITOR [Concomitant]
  5. MIACALCIN [Concomitant]
  6. BUMEX [Concomitant]
  7. SODIUM CHLORIDE [Concomitant]
  8. FOLIC ACID [Concomitant]
  9. LOTENSIN [Concomitant]
  10. FLOMAX [Concomitant]
  11. OXYCONTIN [Concomitant]
  12. NORVASC [Concomitant]
  13. HYDROCODONE (HYDROCODONE) [Concomitant]
  14. PREDNISONE [Concomitant]
  15. CALTRATE (CALCIUM CARBONATE) [Concomitant]
  16. PLAQUENIL [Concomitant]
  17. MAGIC MOUTH WASH (ANTISEPTICS) [Concomitant]
  18. MECLIZINE [Concomitant]
  19. FLOMAX [Concomitant]
  20. ALLEGRA [Concomitant]
  21. FOLIC ACID [Concomitant]
  22. CALTRATE (CALCIUM CARBONATE) [Concomitant]
  23. NEOSPORIN (NEOSPORIN POWDER) [Concomitant]
  24. VIOXX [Concomitant]
  25. CELEBREX [Concomitant]
  26. MOTRIN [Concomitant]

REACTIONS (12)
  - ANHEDONIA [None]
  - DIZZINESS [None]
  - ECCHYMOSIS [None]
  - FEELING ABNORMAL [None]
  - INJURY [None]
  - MENTAL DISORDER [None]
  - PAIN [None]
  - PRURITUS GENERALISED [None]
  - RASH PRURITIC [None]
  - SCAB [None]
  - STOMATITIS [None]
  - TUBERCULOSIS [None]
